FAERS Safety Report 8003950-2 (Version None)
Quarter: 2011Q4

REPORT INFORMATION
  Report Type: 
  Country: None (occurrence: None)
  Receive Date: 20111222
  Receipt Date: 20111213
  Transmission Date: 20120403
  Serious: Yes (Other)
  Sender: FDA-Public Use
  Company Number: US-ASTRAZENECA-2011SE38830

PATIENT
  Age: 72 Year
  Sex: Female

DRUGS (7)
  1. PRILOSEC [Suspect]
     Route: 048
  2. FORTEO [Concomitant]
  3. ACCOLATE [Suspect]
     Route: 048
  4. ACIPHEX [Concomitant]
  5. COUMADIN [Concomitant]
  6. NEXIUM [Suspect]
     Route: 048
  7. NEXIUM [Suspect]
     Route: 048

REACTIONS (12)
  - DRUG DOSE OMISSION [None]
  - PELVIC FRACTURE [None]
  - MALAISE [None]
  - INAPPROPRIATE SCHEDULE OF DRUG ADMINISTRATION [None]
  - DISEASE RECURRENCE [None]
  - ASTHMA [None]
  - ROAD TRAFFIC ACCIDENT [None]
  - BRONCHITIS [None]
  - WEIGHT DECREASED [None]
  - CONDITION AGGRAVATED [None]
  - FALL [None]
  - DRUG INEFFECTIVE [None]
